FAERS Safety Report 21787496 (Version 2)
Quarter: 2023Q1

REPORT INFORMATION
  Report Type: Other
  Country: GB (occurrence: GB)
  Receive Date: 20221228
  Receipt Date: 20230224
  Transmission Date: 20230418
  Serious: Yes (Other)
  Sender: FDA-Public Use
  Company Number: GB-MAYNE PHARMA-2022MYN001490

PATIENT

DRUGS (23)
  1. TAMOXIFEN CITRATE [Suspect]
     Active Substance: TAMOXIFEN CITRATE
     Indication: Breast cancer
     Dosage: 20 MG, QD
     Route: 048
     Dates: start: 20160420
  2. DOCETAXEL [Suspect]
     Active Substance: DOCETAXEL
     Indication: Breast cancer
     Dosage: 130 MG  (EVERY 3 WEEKS)
     Route: 042
     Dates: start: 20150904, end: 20151016
  3. DOCETAXEL [Suspect]
     Active Substance: DOCETAXEL
     Dosage: 100 MG  (EVERY 3 WEEKS)
     Route: 042
     Dates: start: 20151113, end: 20160104
  4. PERTUZUMAB [Suspect]
     Active Substance: PERTUZUMAB
     Indication: Breast cancer
     Dosage: 840 MG (LOADING DOSE ONCE AND MAINTENANCE DOSE OF 420 MG IN 3 WEEKS)
     Route: 042
     Dates: start: 20161208
  5. PERTUZUMAB [Suspect]
     Active Substance: PERTUZUMAB
     Dosage: 840 MG (LOADING DOSE ONCE AND MAINTENANCE DOSE OF 420 MG IN 3 WEEKS)
     Route: 042
     Dates: start: 20150904, end: 20150904
  6. PERTUZUMAB [Suspect]
     Active Substance: PERTUZUMAB
     Dosage: 840 MG (LOADING DOSE ONCE AND MAINTENANCE DOSE OF 420 MG IN 3 WEEKS)
     Route: 042
     Dates: start: 20161117, end: 20161117
  7. PERTUZUMAB [Suspect]
     Active Substance: PERTUZUMAB
     Dosage: 840 MG (LOADING DOSE ONCE AND MAINTENANCE DOSE OF 420 MG IN 3 WEEKS)
     Route: 042
     Dates: start: 20150925, end: 20160916
  8. TRASTUZUMAB [Suspect]
     Active Substance: TRASTUZUMAB
     Indication: Breast cancer
     Dosage: 8 MG/KG LOADING DOSE OF 8 MG/KG AND THEN 6 MG/KG REPEATED AT 3 WEEKLY INTERVALS
     Route: 042
     Dates: start: 20150904, end: 20150904
  9. TRASTUZUMAB [Suspect]
     Active Substance: TRASTUZUMAB
     Dosage: 6 MG/KG  LOADING DOSE OF 8 MG/KG AND THEN 6 MG/KG REPEATED AT 3 WEEKLY INTERVALS
     Route: 042
     Dates: start: 20150925, end: 20160916
  10. TRASTUZUMAB [Suspect]
     Active Substance: TRASTUZUMAB
     Dosage: 6 MG/KG  LOADING DOSE OF 8 MG/KG AND THEN 6 MG/KG REPEATED AT 3 WEEKLY INTERVALS
     Route: 042
     Dates: start: 20161208
  11. TRASTUZUMAB [Suspect]
     Active Substance: TRASTUZUMAB
     Dosage: 8 MG/KG LOADING 8 MG/KG AND THEN MAINTANANCE DOSE 6 MG/KG IN 3 WEEKS
     Route: 042
     Dates: start: 20161117, end: 20161117
  12. BUDESONIDE [Concomitant]
     Active Substance: BUDESONIDE
     Indication: Product used for unknown indication
     Route: 065
  13. BUTYLSCOPOLAMINE BROMIDE [Concomitant]
     Active Substance: BUTYLSCOPOLAMINE BROMIDE
     Indication: Product used for unknown indication
     Route: 065
  14. AMOXICILLIN\CLAVULANATE POTASSIUM [Concomitant]
     Active Substance: AMOXICILLIN\CLAVULANATE POTASSIUM
     Indication: Product used for unknown indication
     Dosage: UNK
     Route: 065
     Dates: start: 20160408, end: 20160412
  15. IMODIUM [Concomitant]
     Active Substance: LOPERAMIDE HYDROCHLORIDE
     Indication: Product used for unknown indication
     Route: 065
  16. INSTILLAGEL [Concomitant]
     Active Substance: CHLORHEXIDINE GLUCONATE\LIDOCAINE HYDROCHLORIDE
     Indication: Product used for unknown indication
     Dosage: UNK
     Route: 065
     Dates: start: 20160426
  17. LANSOPRAZOLE [Concomitant]
     Active Substance: LANSOPRAZOLE
     Indication: Product used for unknown indication
     Route: 065
  18. CHLORPHENIRAMINE MALEATE [Concomitant]
     Active Substance: CHLORPHENIRAMINE MALEATE
     Indication: Anal pruritus
     Dosage: UNK
     Route: 065
     Dates: start: 20170118
  19. SCHERIPROCT [CINCHOCAINE HYDROCHLORIDE;PREDNISOLONE CAPROATE] [Concomitant]
     Indication: Product used for unknown indication
     Route: 065
  20. SENOKOT [Concomitant]
     Active Substance: SENNOSIDES
     Indication: Product used for unknown indication
     Route: 065
  21. TERBUTALINE [Concomitant]
     Active Substance: TERBUTALINE
     Indication: Product used for unknown indication
     Route: 065
  22. UNIROID [Concomitant]
     Indication: Product used for unknown indication
     Route: 065
  23. ZOLEDRONIC ACID [Concomitant]
     Active Substance: ZOLEDRONIC ACID
     Indication: Metastases to bone
     Dosage: UNK
     Route: 065
     Dates: start: 20160129, end: 20170503

REACTIONS (1)
  - Pelvic infection [Recovered/Resolved]

NARRATIVE: CASE EVENT DATE: 20161201
